FAERS Safety Report 26110485 (Version 1)
Quarter: 2025Q4

REPORT INFORMATION
  Report Type: Spontaneous
  Country: GB (occurrence: GB)
  Receive Date: 20251202
  Receipt Date: 20251202
  Transmission Date: 20260117
  Serious: Yes (Other)
  Sender: AUROBINDO
  Company Number: GB-MHRA-TPP918029C18143131YC1763370990291

PATIENT
  Age: 62 Year
  Sex: Female
  Weight: 81 kg

DRUGS (6)
  1. AMOXICILLIN\CLAVULANIC ACID [Suspect]
     Active Substance: AMOXICILLIN\CLAVULANIC ACID
     Indication: Ill-defined disorder
     Dosage: UNK
     Route: 065
  2. TRIMETHOPRIM [Concomitant]
     Active Substance: TRIMETHOPRIM
     Indication: Ill-defined disorder
     Dosage: 1 DOSAGE FORM, TWO TIMES A DAY (ONE TABLET TWICE A DAY)
     Route: 065
     Dates: start: 20250908, end: 20250915
  3. NYSTATIN [Concomitant]
     Active Substance: NYSTATIN
     Indication: Ill-defined disorder
     Dosage: 1 MILLILITER, FOUR TIMES/DAY (1ML ON THE TONGUE 4 TIMES A DAY FOR 7 DAYS)
     Dates: start: 20251105, end: 20251112
  4. FLUCONAZOLE [Concomitant]
     Active Substance: FLUCONAZOLE
     Indication: Ill-defined disorder
     Dosage: TAKE 200MG ON FIRST DAY FOLLOWED BY 100MG ONCE ...
     Route: 065
     Dates: start: 20251104, end: 20251111
  5. ACETAMINOPHEN [Concomitant]
     Active Substance: ACETAMINOPHEN
     Indication: Ill-defined disorder
     Dosage: 10 MILLILITER (TAKE 10ML FOUR TIMES A DAY AS REQUIRED)
     Route: 065
     Dates: start: 20251104, end: 20251111
  6. OMEPRAZOLE [Concomitant]
     Active Substance: OMEPRAZOLE
     Indication: Ill-defined disorder
     Dosage: 1 DOSAGE FORM, ONCE A DAY (1 TWICE A DAY DAILY)
     Route: 065
     Dates: start: 20250226

REACTIONS (4)
  - Tongue ulceration [Recovered/Resolved]
  - Oral mucosal blistering [Recovered/Resolved]
  - Oral discomfort [Recovered/Resolved]
  - Mouth ulceration [Recovered/Resolved]

NARRATIVE: CASE EVENT DATE: 20251106
